FAERS Safety Report 18231546 (Version 2)
Quarter: 2020Q3

REPORT INFORMATION
  Report Type: Spontaneous
  Country: CA (occurrence: CA)
  Receive Date: 20200904
  Receipt Date: 20200914
  Transmission Date: 20201103
  Serious: Yes (Other)
  Sender: FDA-Public Use
  Company Number: CA-PFIZER INC-2020340449

PATIENT
  Age: 25 Year
  Sex: Female

DRUGS (6)
  1. HYDRALAZINE [Suspect]
     Active Substance: HYDRALAZINE HYDROCHLORIDE
     Indication: HYPERTENSION
     Dosage: UNK
     Route: 041
     Dates: start: 19700216
  2. HEPARIN SODIUM. [Suspect]
     Active Substance: HEPARIN SODIUM
     Indication: DISSEMINATED INTRAVASCULAR COAGULATION
     Dosage: 1100 IU (FOLLOWED PER HOUR)
     Route: 042
     Dates: start: 19700216
  3. MEPERIDINE HCL [Suspect]
     Active Substance: MEPERIDINE HYDROCHLORIDE
     Indication: PAIN
     Dosage: 100 MG
     Route: 030
     Dates: start: 19700216
  4. HEPARIN SODIUM. [Suspect]
     Active Substance: HEPARIN SODIUM
     Indication: PREMATURE SEPARATION OF PLACENTA
     Dosage: 5000 IU (INITIAL)
     Route: 042
     Dates: start: 19700216
  5. OXYTOCIN. [Concomitant]
     Active Substance: OXYTOCIN
     Indication: LABOUR INDUCTION
     Dosage: UNK (INFUSION)
     Dates: start: 197002
  6. PHENOXYBENZAMINE [Suspect]
     Active Substance: PHENOXYBENZAMINE
     Indication: LABOUR INDUCTION
     Dosage: UNK
     Dates: start: 19700216

REACTIONS (2)
  - Stillbirth [Unknown]
  - Product use issue [Unknown]

NARRATIVE: CASE EVENT DATE: 19700216
